FAERS Safety Report 19486467 (Version 2)
Quarter: 2021Q3

REPORT INFORMATION
  Report Type: Spontaneous
  Country: CN (occurrence: CN)
  Receive Date: 20210702
  Receipt Date: 20210708
  Transmission Date: 20211014
  Serious: Yes (Hospitalization)
  Sender: FDA-Public Use
  Company Number: CN-ASTRAZENECA-2021A573393

PATIENT
  Age: 81 Year
  Sex: Male
  Weight: 56.5 kg

DRUGS (7)
  1. NIFEDIPINE. [Concomitant]
     Active Substance: NIFEDIPINE
     Indication: HYPOTENSION
     Dosage: ONE TABLET IN THE MORNING
     Route: 048
  2. BUCHANG WENXIN [Concomitant]
     Indication: ARRHYTHMIA
  3. BETALOC [Concomitant]
     Active Substance: METOPROLOL
     Indication: HEART RATE DECREASED
     Dosage: TWICE A DAY, HALF A TABLET IN THE MORNING AND HALF A TABLET IN THE EVENING
     Route: 048
  4. FORXIGA [Suspect]
     Active Substance: DAPAGLIFLOZIN
     Indication: DIABETES MELLITUS
     Route: 048
     Dates: start: 2020
  5. AMLODIPINE [Concomitant]
     Active Substance: AMLODIPINE BESYLATE
     Dosage: 24 HOURS A TABLET
     Route: 048
  6. ASPIRIN. [Concomitant]
     Active Substance: ASPIRIN
     Indication: CEREBRAL THROMBOSIS
     Route: 048
  7. FORXIGA [Suspect]
     Active Substance: DAPAGLIFLOZIN
     Indication: DIABETES MELLITUS
     Dosage: THE PATIENT BROKE THE FORXIGA OFF FOR USE, HE RECEIVED ONE AND HALF A TABLET OF 10MG FOR 2 DAYS
     Route: 048

REACTIONS (4)
  - Atrial fibrillation [Recovering/Resolving]
  - Intentional dose omission [Unknown]
  - Blood pressure decreased [Unknown]
  - Wrong technique in product usage process [Unknown]
